FAERS Safety Report 6211927-2 (Version None)
Quarter: 2009Q2

REPORT INFORMATION
  Report Type: 
  Country: None (occurrence: None)
  Receive Date: 20090528
  Receipt Date: 20090515
  Transmission Date: 20091009
  Serious: Yes (Hospitalization)
  Sender: FDA-Public Use
  Company Number: WAES 0905VEN00002

PATIENT
  Age: 32 Year
  Sex: Female

DRUGS (4)
  1. SINGULAIR [Suspect]
     Indication: ASTHMA
     Dosage: PO
     Route: 048
     Dates: start: 20080917, end: 20090408
  2. CALCIUM (UNSPECIFIED) [Concomitant]
  3. CHOLESCALCIFEROL [Concomitant]
  4. PLACEBO (UNSPECIFIED) [Concomitant]

REACTIONS (2)
  - HERPES ZOSTER [None]
  - KERATITIS HERPETIC [None]
